FAERS Safety Report 6320426-9 (Version None)
Quarter: 2009Q3

REPORT INFORMATION
  Report Type: 
  Country: None (occurrence: None)
  Receive Date: 20090822
  Receipt Date: 20081203
  Transmission Date: 20100115
  Serious: No
  Sender: FDA-Public Use
  Company Number: US-ABBOTT-08P-163-0486836-00

PATIENT
  Sex: Male

DRUGS (9)
  1. NIASPAN [Suspect]
     Indication: HIGH DENSITY LIPOPROTEIN DECREASED
     Dates: start: 20081106
  2. NIASPAN [Suspect]
     Indication: LOW DENSITY LIPOPROTEIN INCREASED
  3. ASPIRIN [Concomitant]
     Indication: DRUG USE FOR UNKNOWN INDICATION
     Route: 048
  4. LISINOPRIL [Concomitant]
     Indication: DRUG USE FOR UNKNOWN INDICATION
     Route: 048
  5. FISH OIL [Concomitant]
     Indication: DRUG USE FOR UNKNOWN INDICATION
     Route: 048
  6. MULTI-VITAMINS [Concomitant]
     Indication: DRUG USE FOR UNKNOWN INDICATION
     Route: 048
  7. UBIDECARENONE [Concomitant]
     Indication: DRUG USE FOR UNKNOWN INDICATION
     Route: 048
  8. INEGY [Concomitant]
     Indication: DRUG USE FOR UNKNOWN INDICATION
     Dosage: 10/20
     Route: 048
  9. QUININE SULFATE [Concomitant]
     Indication: RESTLESS LEGS SYNDROME
     Route: 048

REACTIONS (4)
  - ABDOMINAL DISCOMFORT [None]
  - BLOOD GLUCOSE INCREASED [None]
  - DIARRHOEA [None]
  - FLUSHING [None]
